FAERS Safety Report 7940507-3 (Version None)
Quarter: 2011Q4

REPORT INFORMATION
  Report Type: 
  Country: None (occurrence: None)
  Receive Date: 20111114
  Receipt Date: 20110215
  Transmission Date: 20120403
  Serious: Yes (Hospitalization)
  Sender: FDA-Public Use
  Company Number: 2011S1000086

PATIENT
  Sex: Female

DRUGS (4)
  1. IMMUNOSUPPRESSIVE AGENTS [Concomitant]
  2. CUBICIN [Suspect]
     Indication: ENTEROCOCCAL BACTERAEMIA
  3. CUBICIN [Suspect]
     Indication: STAPHYLOCOCCAL INFECTION
  4. CORTICOSTEROIDS [Concomitant]

REACTIONS (1)
  - PANCYTOPENIA [None]
